FAERS Safety Report 15314993 (Version 1)
Quarter: 2018Q3

REPORT INFORMATION
  Report Type: Spontaneous
  Country: US (occurrence: US)
  Receive Date: 20180815
  Receipt Date: 20180815
  Transmission Date: 20181010
  Serious: Yes (Disabling)
  Sender: FDA-Public Use
  Company Number: None

PATIENT
  Age: 36 Year
  Sex: Male
  Weight: 107.1 kg

DRUGS (1)
  1. LAMOTRIGINE. [Suspect]
     Active Substance: LAMOTRIGINE

REACTIONS (8)
  - Self esteem decreased [None]
  - Hypersensitivity [None]
  - Psychotic disorder [None]
  - Dyskinesia [None]
  - Diverticulitis [None]
  - Tic [None]
  - Muscle rigidity [None]
  - Fatigue [None]

NARRATIVE: CASE EVENT DATE: 20150701
